FAERS Safety Report 4698253-8 (Version None)
Quarter: 2005Q2

REPORT INFORMATION
  Report Type: 
  Country: None (occurrence: None)
  Receive Date: 20050623
  Receipt Date: 20050516
  Transmission Date: 20051028
  Serious: Yes (Hospitalization)
  Sender: FDA-Public Use
  Company Number: PHEH2005US05539

PATIENT
  Age: 8 Year
  Sex: Male
  Weight: 19 kg

DRUGS (6)
  1. ZOMETA [Suspect]
     Indication: HYPERCALCAEMIA OF MALIGNANCY
     Dosage: 4 MG, ONCE/SINGLE
     Dates: start: 20050509, end: 20050509
  2. ZOMETA [Suspect]
     Dosage: 2 MG, ONCE/SINGLE
     Route: 042
     Dates: start: 20050608, end: 20050608
  3. CEFEPIME [Concomitant]
     Indication: PYREXIA
     Dosage: 850 MG, Q8H
     Route: 042
     Dates: start: 20050406, end: 20050523
  4. FUROSEMIDE [Concomitant]
     Indication: HYPERCALCAEMIA
     Dosage: 17 MG, Q4H
     Route: 042
     Dates: start: 20050502, end: 20050516
  5. HYDROCORTISONE [Concomitant]
     Dosage: 1.5 MG, Q6H
     Route: 042
     Dates: start: 20050418
  6. LANSOPRAZOLE [Concomitant]
     Indication: PROPHYLAXIS AGAINST GASTROINTESTINAL ULCER
     Dosage: 15 MG, Q12H
     Route: 048
     Dates: start: 20050419, end: 20050519

REACTIONS (4)
  - BLOOD AMYLASE INCREASED [None]
  - FEEDING DISORDER [None]
  - LIPASE INCREASED [None]
  - PANCREATITIS [None]
